FAERS Safety Report 12174531 (Version 11)
Quarter: 2018Q2

REPORT INFORMATION
  Report Type: Report from Study
  Country: CH (occurrence: CH)
  Receive Date: 20160311
  Receipt Date: 20180522
  Transmission Date: 20180711
  Serious: Yes (Congenital Anomaly)
  Sender: FDA-Public Use
  Company Number: PHHY2016CH030679

PATIENT
  Sex: Female
  Weight: 2.7 kg

DRUGS (12)
  1. MEASLES MUMPS AND ATTENUATED RUBELLA VACCINE [Concomitant]
     Indication: MEASLES IMMUNISATION
     Dosage: ONCE
     Route: 030
     Dates: start: 20160119, end: 20160119
  2. MEASLES MUMPS AND ATTENUATED RUBELLA VACCINE [Concomitant]
     Indication: MUMPS IMMUNISATION
  3. PERTUSSIS VACCINE [Concomitant]
     Active Substance: PERTUSSIS VACCINE
     Indication: PERTUSSIS IMMUNISATION
     Dosage: ONCE
     Route: 030
     Dates: start: 20160119, end: 20160119
  4. VITAMIN D [Concomitant]
     Active Substance: CHOLECALCIFEROL
     Indication: VITAMIN SUPPLEMENTATION
     Dosage: 200 IE, QD
     Route: 048
     Dates: start: 20151117
  5. POLIOMYELITIS VACCINE NOS [Concomitant]
     Active Substance: POLIOMYELITIS VACCINE
     Indication: POLIO IMMUNISATION
     Dosage: ONCE
     Route: 030
     Dates: start: 20160119, end: 20160119
  6. GILENYA [Suspect]
     Active Substance: FINGOLIMOD HYDROCHLORIDE
     Indication: FOETAL EXPOSURE DURING PREGNANCY
     Dosage: MATERNAL DOSE: 0.5 MG QD
     Route: 064
  7. TETANUS TOXOID ADSORBED (VACCINE) [Concomitant]
     Active Substance: CLOSTRIDIUM TETANI TOXOID ANTIGEN (FORMALDEHYDE INACTIVATED)
     Indication: TETANUS IMMUNISATION
     Dosage: ONCE
     Route: 030
     Dates: start: 20160119, end: 20160119
  8. PERTUSSIS VACCINE [Concomitant]
     Active Substance: PERTUSSIS VACCINE
     Dosage: ONCE
     Route: 030
     Dates: start: 20160524, end: 20160524
  9. PNEUMOCOCCAL VACCINE POLYVALENT NOS [Concomitant]
     Active Substance: PNEUMOCOCCAL VACCINE POLYVALENT
     Indication: PNEUMOCOCCAL IMMUNISATION
     Dosage: ONCE
     Route: 030
     Dates: start: 20160119, end: 20160119
  10. TETANUS TOXOID ADSORBED (VACCINE) [Concomitant]
     Active Substance: CLOSTRIDIUM TETANI TOXOID ANTIGEN (FORMALDEHYDE INACTIVATED)
     Dosage: ONCE
     Route: 030
     Dates: start: 20160524, end: 20160524
  11. MEASLES MUMPS AND ATTENUATED RUBELLA VACCINE [Concomitant]
     Indication: RUBELLA IMMUNISATION
  12. HAEMOPHILUS INFLUENZA [Concomitant]
     Indication: IMMUNISATION
     Dosage: ONCE
     Route: 030
     Dates: start: 20160119, end: 20160119

REACTIONS (5)
  - Foetal exposure during pregnancy [Unknown]
  - Ventricular septal defect [Unknown]
  - Atrial septal defect [Unknown]
  - Otitis media [Recovered/Resolved]
  - Chromosomal deletion [Unknown]
